FAERS Safety Report 9459507 (Version 1)
Quarter: 2013Q3

REPORT INFORMATION
  Report Type: Spontaneous
  Country: US (occurrence: US)
  Receive Date: 20130815
  Receipt Date: 20130815
  Transmission Date: 20140515
  Serious: No
  Sender: FDA-Public Use
  Company Number: US-PFIZER INC-2013235171

PATIENT
  Age: 66 Year
  Sex: Female

DRUGS (8)
  1. ADVIL [Suspect]
     Dosage: UNK
  2. CELEBREX [Suspect]
     Dosage: UNK
  3. CIPROFLOXACIN [Suspect]
     Dosage: UNK
  4. METOPROLOL TARTRATE [Suspect]
     Dosage: UNK
  5. METFORMIN HCL [Suspect]
     Dosage: UNK
  6. ACETYLSALICYLIC ACID [Suspect]
     Dosage: UNK
  7. CRESTOR [Suspect]
     Dosage: UNK
  8. PLAVIX [Suspect]
     Dosage: UNK

REACTIONS (1)
  - Drug hypersensitivity [Unknown]
